FAERS Safety Report 21397804 (Version 2)
Quarter: 2022Q4

REPORT INFORMATION
  Report Type: Spontaneous
  Country: HR (occurrence: None)
  Receive Date: 20220930
  Receipt Date: 20221121
  Transmission Date: 20230113
  Serious: Yes (Other)
  Sender: FDA-Public Use
  Company Number: HR-Merck Healthcare KGaA-9351878

PATIENT
  Age: 45 Year
  Sex: Male

DRUGS (4)
  1. MAVENCLAD [Suspect]
     Active Substance: CLADRIBINE
     Indication: Relapsing-remitting multiple sclerosis
     Dosage: FIRST CYCLE
     Dates: start: 201902
  2. MAVENCLAD [Suspect]
     Active Substance: CLADRIBINE
     Dosage: SECOND CYCLE
     Dates: start: 202004
  3. ALEMTUZUMAB [Suspect]
     Active Substance: ALEMTUZUMAB
     Indication: Relapsing-remitting multiple sclerosis
     Dosage: IN 2010 OR 2011 TWO CYCLES
  4. ALEMTUZUMAB [Suspect]
     Active Substance: ALEMTUZUMAB
     Dosage: THIRD CYCLE
     Dates: start: 201709

REACTIONS (4)
  - Autoimmune thyroiditis [Recovered/Resolved]
  - Hyperthyroidism [Recovered/Resolved]
  - Lymphocyte count decreased [Unknown]
  - Multiple sclerosis pseudo relapse [Recovered/Resolved]

NARRATIVE: CASE EVENT DATE: 20190801
